FAERS Safety Report 6212340-4 (Version None)
Quarter: 2009Q2

REPORT INFORMATION
  Report Type: 
  Country: None (occurrence: None)
  Receive Date: 20090529
  Receipt Date: 20070228
  Transmission Date: 20091009
  Serious: Yes (Hospitalization)
  Sender: FDA-Public Use
  Company Number: SU-2007-005966

PATIENT
  Age: 63 Year
  Sex: Female

DRUGS (11)
  1. OLMESARTAN MEDOXOMIL [Suspect]
     Indication: HYPERTENSION
     Dosage: 40 MG (40 MG ONCE A DAY), PER ORAL
     Route: 048
  2. ADALATA OROS (NIFEDIPINE) [Concomitant]
  3. EUTIROX (LEVOTHYROXINE) [Concomitant]
  4. LASIX [Concomitant]
  5. INSULINE (INSULIN HUMAN) [Concomitant]
  6. TEMPRA (PARACETAMOL) [Concomitant]
  7. LYRICA [Concomitant]
  8. ALLOPURINOL [Concomitant]
  9. GLUCOPHAGE [Concomitant]
  10. LIPOMERTA [Concomitant]
  11. TRIMETHOPRIM + SULFAMETHOXAZOLE [Concomitant]

REACTIONS (2)
  - BLOOD POTASSIUM INCREASED [None]
  - MYALGIA [None]
